FAERS Safety Report 6745003-7 (Version None)
Quarter: 2010Q2

REPORT INFORMATION
  Report Type: 
  Country: None (occurrence: None)
  Receive Date: 20100527
  Receipt Date: 20100525
  Transmission Date: 20101027
  Serious: Yes (Hospitalization, Disabling)
  Sender: FDA-Public Use
  Company Number: NL-ROCHE-683605

PATIENT
  Sex: Female

DRUGS (4)
  1. BEVACIZUMAB [Suspect]
     Indication: BREAST CANCER METASTATIC
     Dosage: LAST DOSE PRIOR TO SAE ON 25 FEBRUARY 2010. DRUG TEMPORARILLY DISCONTINUED
     Route: 042
     Dates: start: 20100114
  2. CAPECITABINE [Suspect]
     Indication: BREAST CANCER METASTATIC
     Dosage: LAST DOSE PRIOR TO SAE: 11 MARCH 2010. DRUG TEMPORARILLY DISCONTINUED
     Route: 048
     Dates: start: 20100114
  3. PACLITAXEL [Suspect]
     Indication: BREAST CANCER METASTATIC
     Dosage: LAST DOSE PRIOR TO SAE 04 MARCH 2010. DRUG TEMPORARILLY DISCONTINUED.
     Route: 042
     Dates: start: 20100114
  4. PANTOPRAZOLE SODIUM [Concomitant]
     Dates: start: 20100114

REACTIONS (2)
  - PNEUMOTHORAX TRAUMATIC [None]
  - THROMBOSIS IN DEVICE [None]
